FAERS Safety Report 5549805-4 (Version None)
Quarter: 2007Q4

REPORT INFORMATION
  Report Type: 
  Country: None (occurrence: None)
  Receive Date: 20071207
  Receipt Date: 20071207
  Transmission Date: 20080405
  Serious: Yes (Hospitalization)
  Sender: FDA-Public Use
  Company Number: None

PATIENT
  Age: 82 Year
  Sex: Male
  Weight: 79.38 kg

DRUGS (2)
  1. BENICAR [Suspect]
     Dosage: 20 MG DAILY PO
     Route: 048
  2. POTASSIUM CHLORIDE 20MEQ [Suspect]
     Dosage: 20 MEQ DAILY PO
     Route: 048

REACTIONS (3)
  - HYPERKALAEMIA [None]
  - HYPOVOLAEMIA [None]
  - RENAL FAILURE ACUTE [None]
